FAERS Safety Report 12138067 (Version 7)
Quarter: 2020Q1

REPORT INFORMATION
  Report Type: Spontaneous
  Country: US (occurrence: US)
  Receive Date: 20160302
  Receipt Date: 20200309
  Transmission Date: 20200409
  Serious: Yes (Hospitalization)
  Sender: FDA-Public Use
  Company Number: US-PFIZER INC-2016122985

PATIENT
  Age: 57 Year
  Sex: Female

DRUGS (6)
  1. LYRICA [Suspect]
     Active Substance: PREGABALIN
     Dosage: 600 MG, DAILY [1 CAPSULE 6 TIMES DAILY]
     Route: 048
  2. LYRICA [Suspect]
     Active Substance: PREGABALIN
     Indication: BURNING SENSATION
     Dosage: 10 MG, 2X/DAY
  3. ALPRAZOLAM. [Concomitant]
     Active Substance: ALPRAZOLAM
     Dosage: 0.5 TWICE PER DAY
  4. LYRICA [Suspect]
     Active Substance: PREGABALIN
     Dosage: 100 MG, 4X/DAY
     Route: 048
     Dates: start: 20160810
  5. OXYCODONE [Concomitant]
     Active Substance: OXYCODONE
     Dosage: 25 MG, 4X/DAY
  6. LYRICA [Suspect]
     Active Substance: PREGABALIN
     Indication: NEURALGIA
     Dosage: 100 MG, 2X/DAY
     Dates: start: 2012

REACTIONS (3)
  - Pain in extremity [Not Recovered/Not Resolved]
  - Pain [Not Recovered/Not Resolved]
  - Venous thrombosis [Not Recovered/Not Resolved]

NARRATIVE: CASE EVENT DATE: 2013
